FAERS Safety Report 16464829 (Version 5)
Quarter: 2020Q3

REPORT INFORMATION
  Report Type: Report from Study
  Country: US (occurrence: US)
  Receive Date: 20190621
  Receipt Date: 20200921
  Transmission Date: 20201102
  Serious: No
  Sender: FDA-Public Use
  Company Number: PHEH2019US025833

PATIENT
  Age: 27 Year
  Sex: Male

DRUGS (1)
  1. COSENTYX [Suspect]
     Active Substance: SECUKINUMAB
     Indication: PSORIASIS
     Dosage: 300 MG, (EVERY 4 WEEKS)
     Route: 058
     Dates: start: 20190423

REACTIONS (5)
  - Skin exfoliation [Recovered/Resolved]
  - Blister [Recovered/Resolved]
  - Psoriasis [Unknown]
  - Inappropriate schedule of product administration [Not Recovered/Not Resolved]
  - Stress [Unknown]

NARRATIVE: CASE EVENT DATE: 20191204
